FAERS Safety Report 8835364 (Version 1)
Quarter: 2012Q4

REPORT INFORMATION
  Report Type: 
  Country: US (occurrence: US)
  Receive Date: 20121011
  Receipt Date: 20121011
  Transmission Date: 20130627
  Serious: Yes (Other)
  Sender: FDA-Public Use
  Company Number: US-JNJFOC-20121003093

PATIENT
  Age: 44 Year
  Sex: Male

DRUGS (2)
  1. NICOTINE POLACRILEX GUM 2 MG MINT [Suspect]
     Indication: PRODUCT USED FOR UNKNOWN INDICATION
     Dosage: for 6 years
     Route: 048
     Dates: start: 2006
  2. NICOTINE POLACRILEX GUM [Suspect]
     Indication: PRODUCT USED FOR UNKNOWN INDICATION
     Dosage: for 6 years
     Route: 048
     Dates: start: 2006

REACTIONS (2)
  - Nicotine dependence [Not Recovered/Not Resolved]
  - Intentional drug misuse [Unknown]
